FAERS Safety Report 9626149 (Version 1)
Quarter: 2013Q4

REPORT INFORMATION
  Report Type: Spontaneous
  Country: US (occurrence: None)
  Receive Date: 20131015
  Receipt Date: 20131015
  Transmission Date: 20140711
  Serious: Yes (Disabling)
  Sender: FDA-Public Use
  Company Number: None

PATIENT
  Age: 26 Year
  Sex: Male
  Weight: 74.84 kg

DRUGS (1)
  1. TOPIRAMATE 25MG GLENMARK PHARMACEUTICALS [Suspect]
     Indication: EPILEPSY
     Dosage: 2 PILLS  AT BEDTIME TAKEN BY MOUTH
     Route: 048
     Dates: start: 20130930, end: 20131010

REACTIONS (2)
  - Myopia [None]
  - Terminal insomnia [None]
